FAERS Safety Report 8170348-6 (Version None)
Quarter: 2012Q1

REPORT INFORMATION
  Report Type: 
  Country: None (occurrence: None)
  Receive Date: 20120228
  Receipt Date: 20120217
  Transmission Date: 20120608
  Serious: Yes (Other)
  Sender: FDA-Public Use
  Company Number: KE-ASTELLAS-2012EU001286

PATIENT
  Sex: Female
  Weight: 2.05 kg

DRUGS (4)
  1. LEVOTHYROXINE SODIUM [Concomitant]
     Indication: FOETAL EXPOSURE DURING PREGNANCY
     Dosage: UNK
     Route: 064
  2. PREDNISOLONE [Concomitant]
     Indication: FOETAL EXPOSURE DURING PREGNANCY
     Dosage: UNK
     Route: 064
  3. TACROLIMUS [Suspect]
     Indication: FOETAL EXPOSURE DURING PREGNANCY
     Dosage: UNK
     Route: 064
  4. CYCLOSPORINE [Concomitant]
     Indication: FOETAL EXPOSURE DURING PREGNANCY
     Dosage: UNK
     Route: 064

REACTIONS (8)
  - LOW BIRTH WEIGHT BABY [None]
  - MICROCEPHALY [None]
  - CEREBRAL VENTRICLE DILATATION [None]
  - CEREBRAL DISORDER [None]
  - FOETAL GROWTH RESTRICTION [None]
  - PARTIAL SEIZURES [None]
  - HYPOXIC-ISCHAEMIC ENCEPHALOPATHY [None]
  - DEVELOPMENTAL DELAY [None]
